FAERS Safety Report 4383804-3 (Version None)
Quarter: 2004Q2

REPORT INFORMATION
  Report Type: 
  Country: None (occurrence: None)
  Receive Date: 20040608
  Receipt Date: 20031022
  Transmission Date: 20050107
  Serious: Yes (Other)
  Sender: FDA-Public Use
  Company Number: 200313884BCC

PATIENT
  Age: 46 Year
  Sex: Female
  Weight: 104.3273 kg

DRUGS (6)
  1. ALEVE [Suspect]
     Indication: PAIN
     Dosage: 1100 MG, QD, ORAL
     Route: 048
     Dates: start: 20031008, end: 20031015
  2. PREMARIN [Concomitant]
  3. SPIRONOLACTONE [Concomitant]
  4. GENERIC BRAND MULTI-VITAMIN [Concomitant]
  5. ALBUTEROL [Concomitant]
  6. ALLEGRA [Concomitant]

REACTIONS (3)
  - ASTHMA [None]
  - CHEST PAIN [None]
  - COUGH [None]
